FAERS Safety Report 16431087 (Version 2)
Quarter: 2019Q2

REPORT INFORMATION
  Report Type: Spontaneous
  Country: US (occurrence: US)
  Receive Date: 20190614
  Receipt Date: 20190625
  Transmission Date: 20190711
  Serious: No
  Sender: FDA-Public Use
  Company Number: US-PFIZER INC-2019249024

PATIENT
  Age: 88 Year
  Sex: Female
  Weight: 72.56 kg

DRUGS (4)
  1. PREMARIN [Suspect]
     Active Substance: ESTROGENS, CONJUGATED
     Indication: PROPHYLAXIS URINARY TRACT INFECTION
     Dosage: 1.875 MG, WEEKLY(0.625MG VAGINAL CREAM-APPLIED VAGINALLY 3 TIMES WEEKLY)
     Route: 067
     Dates: start: 201901
  2. INDAPAMIDE. [Concomitant]
     Active Substance: INDAPAMIDE
     Indication: HYPERTENSION
     Dosage: 1.25 MG, DAILY(1 TABLET BY MOUTH EVERY MORNING)
     Route: 048
  3. PREMARIN [Suspect]
     Active Substance: ESTROGENS, CONJUGATED
     Dosage: UNK
     Dates: start: 20190609
  4. SIMVASTATIN. [Concomitant]
     Active Substance: SIMVASTATIN
     Indication: BLOOD CHOLESTEROL INCREASED
     Dosage: 40 MG, DAILY(1 TABLET TAKEN BY MOUTH DAILY AT NIGHT)
     Route: 048

REACTIONS (4)
  - Drug ineffective [Unknown]
  - Alopecia [Not Recovered/Not Resolved]
  - Diarrhoea [Recovered/Resolved]
  - Urinary tract infection [Recovered/Resolved]

NARRATIVE: CASE EVENT DATE: 201903
